FAERS Safety Report 4731274-5 (Version None)
Quarter: 2005Q3

REPORT INFORMATION
  Report Type: 
  Country: None (occurrence: None)
  Receive Date: 20050729
  Receipt Date: 20050725
  Transmission Date: 20060218
  Serious: Yes (Other)
  Sender: FDA-Public Use
  Company Number: 005312

PATIENT
  Age: 64 Year
  Sex: Female

DRUGS (6)
  1. MEDROXYPROGESTERONE ACETATE [Suspect]
     Dosage: ORAL
     Route: 048
     Dates: start: 19920101, end: 19990101
  2. PROVERA [Suspect]
     Dosage: ORAL
     Route: 048
     Dates: start: 19920101, end: 19990101
  3. CYCRIN [Suspect]
     Indication: HORMONE REPLACEMENT THERAPY
     Dosage: ORAL
     Route: 048
     Dates: start: 19920101, end: 19990101
  4. PREMARIN [Suspect]
     Dosage: ORAL
     Route: 048
     Dates: start: 19920101, end: 19990101
  5. ESTRACE [Suspect]
     Dosage: ORAL
     Route: 048
     Dates: start: 19930101, end: 19990101
  6. MEDROXYPROGESTERONE ACETATE [Suspect]
     Dosage: ORAL
     Route: 048
     Dates: start: 19920101, end: 19990101

REACTIONS (2)
  - BREAST CANCER FEMALE [None]
  - BREAST CANCER IN SITU [None]
